FAERS Safety Report 10784046 (Version 1)
Quarter: 2015Q1

REPORT INFORMATION
  Report Type: Spontaneous
  Country: JP (occurrence: JP)
  Receive Date: 20150211
  Receipt Date: 20150211
  Transmission Date: 20150721
  Serious: Yes (Other)
  Sender: FDA-Public Use
  Company Number: JP-AMGEN-JPNSP2014102928

PATIENT
  Age: 82 Year
  Sex: Male

DRUGS (7)
  1. MENESIT [Concomitant]
     Active Substance: CARBIDOPA\LEVODOPA
     Dosage: 200 MG, UNK
     Route: 048
  2. BI SIFROL [Concomitant]
     Active Substance: PRAMIPEXOLE
     Dosage: 1 MG, UNK
     Route: 048
  3. BI-SIFROL [Concomitant]
     Active Substance: PRAMIPEXOLE
     Dosage: 1 MG, UNK
     Route: 048
  4. TAKEPRON [Concomitant]
     Active Substance: LANSOPRAZOLE
     Dosage: 15 MG, UNK
     Route: 065
  5. SAXIZON [Concomitant]
     Active Substance: HYDROCORTISONE SODIUM SUCCINATE
     Dosage: 25 MG, UNK
     Route: 065
  6. NESP [Suspect]
     Active Substance: DARBEPOETIN ALFA
     Indication: NEPHROGENIC ANAEMIA
     Dosage: UNK
     Route: 058
  7. TRERIEF [Concomitant]
     Active Substance: ZONISAMIDE
     Dosage: 25 MG, UNK
     Route: 048

REACTIONS (2)
  - Aplasia pure red cell [Not Recovered/Not Resolved]
  - Altered state of consciousness [Recovered/Resolved]

NARRATIVE: CASE EVENT DATE: 201412
